FAERS Safety Report 8407787-1 (Version None)
Quarter: 2012Q2

REPORT INFORMATION
  Report Type: 
  Country: None (occurrence: None)
  Receive Date: 20120604
  Receipt Date: 20120601
  Transmission Date: 20120825
  Serious: Yes (Hospitalization, Congenital Anomaly)
  Sender: FDA-Public Use
  Company Number: US-GLAXOSMITHKLINE-A0979908A

PATIENT
  Sex: Male

DRUGS (1)
  1. PAXIL [Suspect]
     Indication: PRODUCT USED FOR UNKNOWN INDICATION
     Route: 064

REACTIONS (10)
  - FOETAL EXPOSURE DURING PREGNANCY [None]
  - CARDIAC MURMUR [None]
  - PATENT DUCTUS ARTERIOSUS [None]
  - ATRIAL SEPTAL DEFECT [None]
  - VENTRICULAR SEPTAL DEFECT [None]
  - CARDIOMEGALY [None]
  - VENTRICULAR HYPERTROPHY [None]
  - TACHYPNOEA [None]
  - CONGENITAL ANOMALY [None]
  - DILATATION VENTRICULAR [None]
